FAERS Safety Report 11636932 (Version 1)
Quarter: 2015Q4

REPORT INFORMATION
  Report Type: Spontaneous
  Country: US (occurrence: US)
  Receive Date: 20151016
  Receipt Date: 20151016
  Transmission Date: 20160304
  Serious: Yes (Hospitalization, Other)
  Sender: FDA-Public Use
  Company Number: US-PFIZER INC-2015336967

PATIENT
  Age: 7 Decade
  Sex: Male

DRUGS (1)
  1. METHYLPREDNISOLONE SODIUM SUCCINATE. [Suspect]
     Active Substance: METHYLPREDNISOLONE SODIUM SUCCINATE
     Indication: MYELOPATHY
     Route: 042

REACTIONS (4)
  - Condition aggravated [Unknown]
  - Fluid retention [Unknown]
  - Paraplegia [Recovering/Resolving]
  - Dural arteriovenous fistula [Unknown]
